FAERS Safety Report 7788352-6 (Version None)
Quarter: 2011Q3

REPORT INFORMATION
  Report Type: 
  Country: None (occurrence: None)
  Receive Date: 20110927
  Receipt Date: 20110913
  Transmission Date: 20111222
  Serious: Yes (Hospitalization)
  Sender: FDA-Public Use
  Company Number: 2011MA013465

PATIENT
  Age: 76 Year
  Sex: Female

DRUGS (4)
  1. OXYCODONE/ACETAMINOPHEN [Concomitant]
  2. GABAPENTIN [Suspect]
     Indication: DIABETIC NEUROPATHY
     Dosage: 1200 MG;Q8HR
  3. GLYBURIDE [Concomitant]
  4. ZOLPIDEM [Concomitant]

REACTIONS (9)
  - DRUG WITHDRAWAL SYNDROME [None]
  - EMOTIONAL DISTRESS [None]
  - DYSKINESIA [None]
  - ANXIETY [None]
  - AGITATION [None]
  - RESTLESS LEGS SYNDROME [None]
  - AKATHISIA [None]
  - PAIN IN EXTREMITY [None]
  - CONFUSIONAL STATE [None]
